FAERS Safety Report 18846621 (Version 1)
Quarter: 2021Q1

REPORT INFORMATION
  Report Type: Report from Study
  Country: US (occurrence: US)
  Receive Date: 20210203
  Receipt Date: 20210203
  Transmission Date: 20210419
  Serious: No
  Sender: FDA-Public Use
  Company Number: US-EXELIXIS-CABO-20026590

PATIENT
  Sex: Male
  Weight: 81.63 kg

DRUGS (9)
  1. MOTRIN [Concomitant]
     Active Substance: IBUPROFEN
     Dosage: UNK
  2. ZOFRAN [Concomitant]
     Active Substance: ONDANSETRON HYDROCHLORIDE
     Dosage: UNK
  3. OXYCODONE HYDROCHLORIDE. [Concomitant]
     Active Substance: OXYCODONE HYDROCHLORIDE
     Dosage: UNK
  4. CABOMETYX [Suspect]
     Active Substance: CABOZANTINIB S-MALATE
     Indication: RENAL CELL CARCINOMA
     Dosage: 20 MG, QD
     Route: 048
  5. EXCEDRIN MIGRAINE [Concomitant]
     Active Substance: ACETAMINOPHEN\ASPIRIN\CAFFEINE
     Dosage: UNK
  6. OLANZAPINE. [Concomitant]
     Active Substance: OLANZAPINE
     Dosage: UNK
  7. PROCHLORPERAZINE MALEATE. [Concomitant]
     Active Substance: PROCHLORPERAZINE MALEATE
     Dosage: UNK
  8. CLINDAMYCIN HCL [Concomitant]
     Active Substance: CLINDAMYCIN HYDROCHLORIDE
     Dosage: UNK
  9. CORTEF [Concomitant]
     Active Substance: HYDROCORTISONE
     Dosage: UNK

REACTIONS (2)
  - Tooth infection [Unknown]
  - Rash [Unknown]
